FAERS Safety Report 9402450 (Version 3)
Quarter: 2013Q3

REPORT INFORMATION
  Report Type: Report from Study
  Country: US (occurrence: US)
  Receive Date: 20130716
  Receipt Date: 20130808
  Transmission Date: 20140515
  Serious: Yes (Other)
  Sender: FDA-Public Use
  Company Number: US-ROCHE-1248070

PATIENT
  Age: 59 Year
  Sex: Male

DRUGS (6)
  1. RITUXAN [Suspect]
     Indication: NON-HODGKIN^S LYMPHOMA
     Route: 065
     Dates: start: 200704
  2. METAMUCIL [Concomitant]
     Route: 065
  3. PROCHLORPERAZINE [Concomitant]
     Route: 065
  4. TYLENOL [Concomitant]
     Dosage: AS REQUIRED
     Route: 065
  5. TYLENOL SINUS (UNK INGREDIENTS) [Concomitant]
  6. BENDAMUSTINE HYDROCHLORIDE [Concomitant]

REACTIONS (11)
  - B-cell lymphoma [Unknown]
  - Pancytopenia [Unknown]
  - Lymphadenopathy [Unknown]
  - Disease progression [Unknown]
  - Diverticulitis [Unknown]
  - Haemorrhoids [Unknown]
  - Lymphoma [Unknown]
  - Blood alkaline phosphatase increased [Unknown]
  - Fatigue [Unknown]
  - Neutropenia [Unknown]
  - Thrombocytopenia [Unknown]
